FAERS Safety Report 18141036 (Version 2)
Quarter: 2020Q3

REPORT INFORMATION
  Report Type: Spontaneous
  Country: US (occurrence: US)
  Receive Date: 20200812
  Receipt Date: 20200818
  Transmission Date: 20201103
  Serious: No
  Sender: FDA-Public Use
  Company Number: US-OTSUKA-2020_007209

PATIENT
  Sex: Female
  Weight: 58.97 kg

DRUGS (7)
  1. WELLBUTRIN [Concomitant]
     Active Substance: BUPROPION HYDROCHLORIDE
     Dosage: 200 MG, UNK
     Route: 065
  2. REXULTI [Suspect]
     Active Substance: BREXPIPRAZOLE
     Indication: DEPRESSION
     Dosage: UNK
     Route: 065
  3. ABILIFY [Suspect]
     Active Substance: ARIPIPRAZOLE
     Indication: DEPRESSION
     Dosage: UNK
     Route: 065
  4. CYMBALTA [Concomitant]
     Active Substance: DULOXETINE HYDROCHLORIDE
     Indication: DEPRESSION
     Dosage: 120 MG, QD
     Route: 048
  5. WELLBUTRIN [Concomitant]
     Active Substance: BUPROPION HYDROCHLORIDE
     Indication: DEPRESSION
     Dosage: UNK
     Route: 065
  6. DILAUDID [Concomitant]
     Active Substance: HYDROMORPHONE HYDROCHLORIDE
     Indication: PAIN
     Dosage: UNK
     Route: 065
  7. FENTANYL. [Concomitant]
     Active Substance: FENTANYL
     Indication: PAIN
     Dosage: 100 MCG PATCH EVERY 72 HOURS
     Route: 065

REACTIONS (7)
  - Gait disturbance [Unknown]
  - Blood pressure increased [Unknown]
  - Appetite disorder [Recovered/Resolved]
  - Weight increased [Recovered/Resolved]
  - Weight decreased [Unknown]
  - Joint injury [Not Recovered/Not Resolved]
  - Malaise [Unknown]
